FAERS Safety Report 10027572 (Version 1)
Quarter: 2014Q1

REPORT INFORMATION
  Report Type: Spontaneous
  Country: US (occurrence: US)
  Receive Date: 20140321
  Receipt Date: 20140321
  Transmission Date: 20141002
  Serious: No
  Sender: FDA-Public Use
  Company Number: US-BAYER-2014-043011

PATIENT
  Age: 29 Year
  Sex: Male

DRUGS (1)
  1. GADAVIST [Suspect]
     Dosage: 7 ML, ONCE
     Route: 042
     Dates: start: 20140311, end: 20140311

REACTIONS (1)
  - Nausea [Recovered/Resolved]
